FAERS Safety Report 4317400-0 (Version None)
Quarter: 2004Q1

REPORT INFORMATION
  Report Type: 
  Country: None (occurrence: None)
  Receive Date: 20040312
  Receipt Date: 20040302
  Transmission Date: 20041129
  Serious: Yes (Congenital Anomaly)
  Sender: FDA-Public Use
  Company Number: 2003152200CA

PATIENT
  Sex: Male

DRUGS (2)
  1. UNIDET (TOLTERODINE) CAPSULE, PROLONGED RELEASE [Suspect]
     Dosage: TRANSPLACENTAL
     Route: 064
     Dates: end: 20030201
  2. PAXIL [Concomitant]

REACTIONS (2)
  - APLASIA CUTIS CONGENITA [None]
  - DRUG EXPOSURE DURING PREGNANCY [None]
